FAERS Safety Report 4287160-0 (Version None)
Quarter: 2004Q1

REPORT INFORMATION
  Report Type: 
  Country: None (occurrence: None)
  Receive Date: 20040121
  Receipt Date: 20030811
  Transmission Date: 20041129
  Serious: Yes (Other)
  Sender: FDA-Public Use
  Company Number: A03200301816

PATIENT
  Age: 41 Year
  Sex: Male
  Weight: 65.7716 kg

DRUGS (1)
  1. PLAVIX [Suspect]
     Indication: PERIPHERAL VASCULAR DISORDER
     Dosage: 75 MG QD - ORAL
     Route: 048
     Dates: start: 20010301

REACTIONS (2)
  - EYE HAEMORRHAGE [None]
  - PERIORBITAL HAEMATOMA [None]
